FAERS Safety Report 18982734 (Version 12)
Quarter: 2025Q3

REPORT INFORMATION
  Report Type: Report from Study
  Country: CO (occurrence: CO)
  Receive Date: 20210308
  Receipt Date: 20250904
  Transmission Date: 20251020
  Serious: Yes (Other)
  Sender: TAKEDA
  Company Number: CO-TAKEDA-CO202018048

PATIENT
  Age: 29 Year
  Sex: Male
  Weight: 100 kg

DRUGS (12)
  1. ICATIBANT [Suspect]
     Active Substance: ICATIBANT ACETATE
     Indication: Hereditary angioedema
  2. ICATIBANT [Suspect]
     Active Substance: ICATIBANT ACETATE
     Indication: Angioedema
     Dosage: 30 MILLIGRAM, Q6HR
     Dates: start: 20151212
  3. ICATIBANT [Suspect]
     Active Substance: ICATIBANT ACETATE
  4. ICATIBANT [Suspect]
     Active Substance: ICATIBANT ACETATE
     Dates: start: 20200711, end: 20200722
  5. ICATIBANT [Suspect]
     Active Substance: ICATIBANT ACETATE
     Dates: start: 20200731, end: 20200731
  6. ICATIBANT [Suspect]
     Active Substance: ICATIBANT ACETATE
     Dates: start: 20200803, end: 20200820
  7. ICATIBANT [Suspect]
     Active Substance: ICATIBANT ACETATE
  8. ICATIBANT [Suspect]
     Active Substance: ICATIBANT ACETATE
  9. TAKHZYRO [Suspect]
     Active Substance: LANADELUMAB-FLYO
     Indication: Hereditary angioedema
     Dosage: 300 MILLIGRAM, Q2WEEKS
     Dates: start: 20230105
  10. TAKHZYRO [Suspect]
     Active Substance: LANADELUMAB-FLYO
     Dosage: 300 MILLIGRAM, 2/MONTH
  11. TAKHZYRO [Suspect]
     Active Substance: LANADELUMAB-FLYO
  12. TAKHZYRO [Suspect]
     Active Substance: LANADELUMAB-FLYO
     Dosage: 300 MILLIGRAM, MONTHLY

REACTIONS (12)
  - Diarrhoea haemorrhagic [Unknown]
  - Asthenia [Unknown]
  - Treatment noncompliance [Unknown]
  - Decreased appetite [Unknown]
  - Discouragement [Unknown]
  - Hereditary angioedema [Recovered/Resolved]
  - Vomiting [Recovered/Resolved]
  - Weight increased [Unknown]
  - Weight decreased [Unknown]
  - Body height decreased [Unknown]
  - Off label use [Unknown]
  - Inappropriate schedule of product administration [Unknown]

NARRATIVE: CASE EVENT DATE: 20210510
